FAERS Safety Report 15212034 (Version 2)
Quarter: 2018Q3

REPORT INFORMATION
  Report Type: Spontaneous
  Country: US (occurrence: US)
  Receive Date: 20180730
  Receipt Date: 20180806
  Transmission Date: 20181010
  Serious: No
  Sender: FDA-Public Use
  Company Number: US-ROCHE-2161512

PATIENT
  Sex: Male

DRUGS (6)
  1. PREDNISONE. [Concomitant]
     Active Substance: PREDNISONE
  2. PROPRANOLOL [Concomitant]
     Active Substance: PROPRANOLOL HYDROCHLORIDE
  3. FOLIC ACID. [Concomitant]
     Active Substance: FOLIC ACID
  4. PRIMIDONE. [Concomitant]
     Active Substance: PRIMIDONE
  5. ESBRIET [Suspect]
     Active Substance: PIRFENIDONE
     Indication: IDIOPATHIC PULMONARY FIBROSIS
     Route: 048
     Dates: start: 20180624
  6. OMEPRAZOLE. [Concomitant]
     Active Substance: OMEPRAZOLE

REACTIONS (2)
  - Vision blurred [Unknown]
  - Dyspnoea [Unknown]
